FAERS Safety Report 21061899 (Version 1)
Quarter: 2022Q3

REPORT INFORMATION
  Report Type: Spontaneous
  Country: FR (occurrence: None)
  Receive Date: 20220710
  Receipt Date: 20220710
  Transmission Date: 20221026
  Serious: Yes (Other)
  Sender: FDA-Public Use
  Company Number: FR-MICRO LABS LIMITED-ML2022-03171

PATIENT
  Age: 49 Year
  Sex: Male

DRUGS (6)
  1. LEVETIRACETAM [Suspect]
     Active Substance: LEVETIRACETAM
     Indication: Neuropathy peripheral
     Dosage: 1000 MG B.I.D.
  2. LEVETIRACETAM [Suspect]
     Active Substance: LEVETIRACETAM
     Indication: Encephalopathy
  3. LEVETIRACETAM [Suspect]
     Active Substance: LEVETIRACETAM
     Indication: Epilepsy
  4. PREGABALIN [Suspect]
     Active Substance: PREGABALIN
     Indication: Neuropathy peripheral
     Dosage: 100 MG B.I.D.
  5. PREGABALIN [Suspect]
     Active Substance: PREGABALIN
     Indication: Encephalopathy
  6. PREGABALIN [Suspect]
     Active Substance: PREGABALIN
     Indication: Epilepsy

REACTIONS (2)
  - Nicotinic acid deficiency [Recovering/Resolving]
  - Decreased appetite [Unknown]
